FAERS Safety Report 13783870 (Version 1)
Quarter: 2017Q3

REPORT INFORMATION
  Report Type: Spontaneous
  Country: US (occurrence: US)
  Receive Date: 20170724
  Receipt Date: 20170724
  Transmission Date: 20171127
  Serious: No
  Sender: FDA-Public Use
  Company Number: US-B.I. PHARMACEUTICALS,INC./RIDGEFIELD-2017-BI-040594

PATIENT
  Sex: Male
  Weight: 60.8 kg

DRUGS (2)
  1. CLONIDINE. [Suspect]
     Active Substance: CLONIDINE
     Indication: PRODUCT USED FOR UNKNOWN INDICATION
     Route: 065
  2. SOMATROPIN (GENOTROPIN) [Concomitant]
     Indication: DWARFISM
     Route: 058
     Dates: start: 201503

REACTIONS (1)
  - Drug ineffective [Unknown]
